FAERS Safety Report 19567666 (Version 2)
Quarter: 2021Q3

REPORT INFORMATION
  Report Type: Spontaneous
  Country: GB (occurrence: GB)
  Receive Date: 20210714
  Receipt Date: 20210730
  Transmission Date: 20211014
  Serious: Yes (Life-Threatening, Hospitalization, Disabling, Other)
  Sender: FDA-Public Use
  Company Number: GB-TEVA-2021-GB-1931713

PATIENT
  Age: 29 Year
  Sex: Female
  Weight: 110 kg

DRUGS (4)
  1. GABAPENTIN. [Suspect]
     Active Substance: GABAPENTIN
     Indication: FIBROMYALGIA
     Dosage: 1800 MILLIGRAM DAILY;
     Route: 048
     Dates: start: 20190509, end: 20210630
  2. FEXOFENADINE HYDROCHLORIDE. [Concomitant]
     Active Substance: FEXOFENADINE HYDROCHLORIDE
     Indication: ILL-DEFINED DISORDER
     Route: 065
  3. COCODAMOL [Suspect]
     Active Substance: ACETAMINOPHEN\CODEINE PHOSPHATE
     Indication: FIBROMYALGIA
     Dosage: 8 DOSAGE FORMS DAILY; 30/500 8 TABLETS A DAY
     Route: 048
     Dates: start: 20180728, end: 20200620
  4. OMEPRAZOL [Concomitant]
     Active Substance: OMEPRAZOLE
     Indication: ILL-DEFINED DISORDER
     Route: 065

REACTIONS (36)
  - Sensory loss [Unknown]
  - Dyspnoea [Unknown]
  - Depression [Unknown]
  - Muscular weakness [Unknown]
  - Dysphagia [Unknown]
  - Mental impairment [Unknown]
  - Increased appetite [Unknown]
  - Anxiety [Unknown]
  - Insomnia [Unknown]
  - Muscle spasms [Unknown]
  - Speech disorder [Unknown]
  - Dyspepsia [Unknown]
  - Mood swings [Unknown]
  - Hypokinesia [Unknown]
  - Diarrhoea [Unknown]
  - Confusional state [Unknown]
  - Sexual dysfunction [Unknown]
  - Sensitive skin [Unknown]
  - Influenza like illness [Unknown]
  - Vertigo [Unknown]
  - Abdominal pain upper [Unknown]
  - Nausea [Unknown]
  - Myalgia [Unknown]
  - Diplopia [Unknown]
  - Tooth disorder [Unknown]
  - Back pain [Unknown]
  - Documented hypersensitivity to administered product [Unknown]
  - Anger [Unknown]
  - Arthralgia [Unknown]
  - Breast enlargement [Unknown]
  - Vomiting [Unknown]
  - Weight increased [Unknown]
  - Vision blurred [Unknown]
  - Loss of consciousness [Unknown]
  - Muscle twitching [Unknown]
  - Agitation [Unknown]

NARRATIVE: CASE EVENT DATE: 20191215
